FAERS Safety Report 16299504 (Version 2)
Quarter: 2021Q1

REPORT INFORMATION
  Report Type: Spontaneous
  Country: US (occurrence: US)
  Receive Date: 20190510
  Receipt Date: 20210226
  Transmission Date: 20210419
  Serious: Yes (Hospitalization, Other)
  Sender: FDA-Public Use
  Company Number: US-ASTRAZENECA-2019SE66898

PATIENT
  Age: 47 Year
  Sex: Female
  Weight: 132.9 kg

DRUGS (74)
  1. PRILOSEC [Suspect]
     Active Substance: OMEPRAZOLE MAGNESIUM
     Indication: GASTROOESOPHAGEAL REFLUX DISEASE
     Dosage: FGENERIC40.0MG UNKNOWN
     Route: 048
     Dates: start: 20140630
  2. LEVOFLOXACIN. [Concomitant]
     Active Substance: LEVOFLOXACIN
     Indication: LYME DISEASE
     Dates: start: 2001
  3. ADVIL [Concomitant]
     Active Substance: IBUPROFEN
     Indication: HEADACHE
  4. MEPRON [Concomitant]
     Active Substance: ATOVAQUONE
     Dates: start: 20100108
  5. MYCOBUTIN [Concomitant]
     Active Substance: RIFABUTIN
     Dates: start: 20110201
  6. ONDANSETRON [Concomitant]
     Active Substance: ONDANSETRON
  7. NUVIGIL [Concomitant]
     Active Substance: ARMODAFINIL
  8. FLUCONAZOLE. [Concomitant]
     Active Substance: FLUCONAZOLE
  9. MIRTAZAPINE. [Concomitant]
     Active Substance: MIRTAZAPINE
  10. SPIRONOLACTONE. [Concomitant]
     Active Substance: SPIRONOLACTONE
  11. POTASSIUM CHLORIDE. [Concomitant]
     Active Substance: POTASSIUM CHLORIDE
  12. NEXIUM 24HR [Suspect]
     Active Substance: ESOMEPRAZOLE MAGNESIUM
     Indication: GASTROOESOPHAGEAL REFLUX DISEASE
     Route: 048
     Dates: start: 2014
  13. MINOCYCLINE [Concomitant]
     Active Substance: MINOCYCLINE HYDROCHLORIDE
     Indication: LYME DISEASE
     Dates: start: 2001
  14. PEPCID [Concomitant]
     Active Substance: FAMOTIDINE
  15. CEFDINIR. [Concomitant]
     Active Substance: CEFDINIR
     Dates: start: 20111201
  16. EPIPEN [Concomitant]
     Active Substance: EPINEPHRINE
     Dates: start: 20130802
  17. AMBIEN [Concomitant]
     Active Substance: ZOLPIDEM TARTRATE
  18. ATOVAQUONE. [Concomitant]
     Active Substance: ATOVAQUONE
  19. KETAMINE [Concomitant]
     Active Substance: KETAMINE
  20. SEPTRA [Concomitant]
     Active Substance: SULFAMETHOXAZOLE\TRIMETHOPRIM
  21. NEXIUM [Suspect]
     Active Substance: ESOMEPRAZOLE MAGNESIUM
     Indication: GASTROOESOPHAGEAL REFLUX DISEASE
     Route: 048
     Dates: start: 200805, end: 200807
  22. PRILOSEC [Suspect]
     Active Substance: OMEPRAZOLE MAGNESIUM
     Indication: GASTROOESOPHAGEAL REFLUX DISEASE
     Route: 048
     Dates: start: 2000, end: 2008
  23. PRILOSEC [Suspect]
     Active Substance: OMEPRAZOLE MAGNESIUM
     Indication: GASTROOESOPHAGEAL REFLUX DISEASE
     Dosage: OMEPRAZOLE
     Route: 065
  24. PREVACID [Suspect]
     Active Substance: LANSOPRAZOLE
     Indication: GASTROOESOPHAGEAL REFLUX DISEASE
     Route: 065
     Dates: start: 200805, end: 200807
  25. PREVACID 24 HR [Suspect]
     Active Substance: LANSOPRAZOLE
     Indication: GASTROOESOPHAGEAL REFLUX DISEASE
     Route: 065
     Dates: start: 200805, end: 200807
  26. TRAMADOL. [Concomitant]
     Active Substance: TRAMADOL
     Indication: LYME DISEASE
     Dates: start: 2001
  27. CIPROFLOXACIN. [Concomitant]
     Active Substance: CIPROFLOXACIN
     Indication: LYME DISEASE
     Dates: start: 2001
  28. OXYCODONE [Concomitant]
     Active Substance: OXYCODONE
     Dates: start: 20150727
  29. VERAMYST [Concomitant]
     Active Substance: FLUTICASONE FUROATE
     Dates: start: 20100108
  30. DEPLIN [Concomitant]
     Active Substance: LEVOMEFOLATE CALCIUM
     Dates: start: 20100113
  31. PROMETHAZINE [Concomitant]
     Active Substance: PROMETHAZINE HYDROCHLORIDE
  32. LYRICA [Concomitant]
     Active Substance: PREGABALIN
  33. LEXAPRO [Concomitant]
     Active Substance: ESCITALOPRAM OXALATE
  34. DOXYCYCLINE. [Concomitant]
     Active Substance: DOXYCYCLINE
     Indication: LYME DISEASE
     Dates: start: 2001
  35. SIMVASTATIN. [Concomitant]
     Active Substance: SIMVASTATIN
  36. CYMBALTA [Concomitant]
     Active Substance: DULOXETINE HYDROCHLORIDE
  37. ATROPINE SULFATE. [Concomitant]
     Active Substance: ATROPINE SULFATE
  38. FENTANYL. [Concomitant]
     Active Substance: FENTANYL
  39. NEXIUM [Suspect]
     Active Substance: ESOMEPRAZOLE MAGNESIUM
     Indication: GASTROOESOPHAGEAL REFLUX DISEASE
     Dosage: ESOMEPRAZOLE
     Route: 065
  40. PRILOSEC OTC [Suspect]
     Active Substance: OMEPRAZOLE MAGNESIUM
     Route: 048
     Dates: start: 200805, end: 200807
  41. PROTONIX [Suspect]
     Active Substance: PANTOPRAZOLE SODIUM
     Indication: GASTROOESOPHAGEAL REFLUX DISEASE
     Route: 065
     Dates: start: 200805, end: 200807
  42. PROTONIX [Suspect]
     Active Substance: PANTOPRAZOLE SODIUM
     Indication: GASTROOESOPHAGEAL REFLUX DISEASE
     Route: 048
     Dates: start: 20080716
  43. NABUMETONE. [Concomitant]
     Active Substance: NABUMETONE
     Dates: start: 20110323
  44. CLONAZEPAM. [Concomitant]
     Active Substance: CLONAZEPAM
     Dates: start: 20130828
  45. SEROQUEL [Concomitant]
     Active Substance: QUETIAPINE FUMARATE
  46. PAXIL [Concomitant]
     Active Substance: PAROXETINE HYDROCHLORIDE
  47. PAROXETINE. [Concomitant]
     Active Substance: PAROXETINE
  48. NEXIUM 24HR [Suspect]
     Active Substance: ESOMEPRAZOLE MAGNESIUM
     Indication: GASTROOESOPHAGEAL REFLUX DISEASE
     Route: 048
     Dates: start: 200805, end: 200807
  49. PREVACID [Suspect]
     Active Substance: LANSOPRAZOLE
     Indication: GASTROOESOPHAGEAL REFLUX DISEASE
     Route: 065
     Dates: start: 2000, end: 2008
  50. PREVACID 24 HR [Suspect]
     Active Substance: LANSOPRAZOLE
     Indication: GASTROOESOPHAGEAL REFLUX DISEASE
     Route: 065
     Dates: start: 2009
  51. AMOXICILLIN. [Concomitant]
     Active Substance: AMOXICILLIN
     Indication: LYME DISEASE
     Dates: start: 2001
  52. HYDROCHLOROTHIAZIDE. [Concomitant]
     Active Substance: HYDROCHLOROTHIAZIDE
     Indication: HYPERTENSION
     Dates: start: 20120222, end: 20120523
  53. VITAMIN D [Concomitant]
     Active Substance: VITAMIN D NOS
     Dates: start: 20100108
  54. AMOXICILLINE [Concomitant]
     Active Substance: AMOXICILLIN
  55. NYSTATIN. [Concomitant]
     Active Substance: NYSTATIN
  56. CARBAMAZEPINE. [Concomitant]
     Active Substance: CARBAMAZEPINE
  57. OXYBUTIN [Concomitant]
     Active Substance: OXYBUTYNIN
  58. LORTAB [Concomitant]
     Active Substance: ACETAMINOPHEN\HYDROCODONE BITARTRATE
  59. BENICAR [Concomitant]
     Active Substance: OLMESARTAN MEDOXOMIL
  60. FLAGYL [Concomitant]
     Active Substance: METRONIDAZOLE\METRONIDAZOLE HYDROCHLORIDE
  61. PROPOFOL. [Concomitant]
     Active Substance: PROPOFOL
  62. NEXIUM [Suspect]
     Active Substance: ESOMEPRAZOLE MAGNESIUM
     Indication: GASTROOESOPHAGEAL REFLUX DISEASE
     Route: 048
     Dates: start: 2001, end: 2008
  63. MELOXICAM. [Concomitant]
     Active Substance: MELOXICAM
     Indication: LYME DISEASE
     Dates: start: 2001, end: 2017
  64. ZOLPIDEM [Concomitant]
     Active Substance: ZOLPIDEM TARTRATE
  65. ZOSYN [Concomitant]
     Active Substance: PIPERACILLIN SODIUM\TAZOBACTAM SODIUM
  66. DICLOFENAC [Concomitant]
     Active Substance: DICLOFENAC
  67. PROTONIX [Suspect]
     Active Substance: PANTOPRAZOLE SODIUM
     Indication: GASTROOESOPHAGEAL REFLUX DISEASE
     Route: 065
     Dates: start: 2000, end: 2008
  68. NAPROXEN. [Concomitant]
     Active Substance: NAPROXEN
     Indication: LYME DISEASE
     Dates: start: 2001
  69. HYDROCODONE [Concomitant]
     Active Substance: HYDROCODONE
     Dates: start: 20151123
  70. METRONIDAZOLE. [Concomitant]
     Active Substance: METRONIDAZOLE
     Dates: start: 20100108
  71. TRAZODONE [Concomitant]
     Active Substance: TRAZODONE HYDROCHLORIDE
     Dates: start: 20120524
  72. LAMICTAL [Concomitant]
     Active Substance: LAMOTRIGINE
  73. ENABLEX [Concomitant]
     Active Substance: DARIFENACIN HYDROBROMIDE
  74. VIVELLE [Concomitant]
     Active Substance: ESTRADIOL

REACTIONS (6)
  - Chronic kidney disease [Not Recovered/Not Resolved]
  - Acute kidney injury [Not Recovered/Not Resolved]
  - Renal failure [Unknown]
  - Metabolic acidosis [Unknown]
  - Renal tubular necrosis [Unknown]
  - Hyperkalaemia [Unknown]

NARRATIVE: CASE EVENT DATE: 2008
